FAERS Safety Report 8396086-2 (Version None)
Quarter: 2012Q2

REPORT INFORMATION
  Report Type: 
  Country: None (occurrence: None)
  Receive Date: 20120530
  Receipt Date: 20120521
  Transmission Date: 20120825
  Serious: Yes (Hospitalization)
  Sender: FDA-Public Use
  Company Number: US-ASTRAZENECA-2010SE05477

PATIENT
  Age: 51 Year
  Sex: Female

DRUGS (2)
  1. SYMBICORT [Suspect]
     Dosage: 160/4.5 UG TWO PUFFS TWICE A DAY
     Route: 055
     Dates: start: 20090801
  2. ALBUTEROL [Concomitant]
     Dosage: DAILY
     Route: 055

REACTIONS (4)
  - ASTHMA [None]
  - DRUG DOSE OMISSION [None]
  - MALAISE [None]
  - NASOPHARYNGITIS [None]
